FAERS Safety Report 23902001 (Version 1)
Quarter: 2024Q2

REPORT INFORMATION
  Report Type: Spontaneous
  Country: US (occurrence: None)
  Receive Date: 20240526
  Receipt Date: 20240526
  Transmission Date: 20240716
  Serious: No
  Sender: FDA-Public Use
  Company Number: US-ROCHE-3472935

PATIENT
  Sex: Female

DRUGS (4)
  1. ACTEMRA [Suspect]
     Active Substance: TOCILIZUMAB
     Indication: Rheumatoid arthritis
     Dosage: DOSE STRENGTH: 162 MG/0.9 M?UNDER THE SKIN
     Route: 058
     Dates: start: 202208
  2. ACTEMRA [Suspect]
     Active Substance: TOCILIZUMAB
  3. ARAVA [Concomitant]
     Active Substance: LEFLUNOMIDE
  4. AMOXICILLIN [Concomitant]
     Active Substance: AMOXICILLIN

REACTIONS (9)
  - Pain [Unknown]
  - Sinusitis [Unknown]
  - Urinary tract infection [Unknown]
  - Oral pain [Unknown]
  - Swelling face [Unknown]
  - Hepatic function abnormal [Unknown]
  - Lymphoedema [Unknown]
  - Hypertension [Unknown]
  - Nephropathy [Unknown]
